FAERS Safety Report 14949835 (Version 2)
Quarter: 2018Q3

REPORT INFORMATION
  Report Type: Spontaneous
  Country: FR (occurrence: FR)
  Receive Date: 20180530
  Receipt Date: 20180824
  Transmission Date: 20181010
  Serious: Yes (Life-Threatening, Hospitalization, Other)
  Sender: FDA-Public Use
  Company Number: FR-CONCORDIA PHARMACEUTICALS INC.-E2B_00011931

PATIENT
  Age: 50 Year
  Sex: Male

DRUGS (13)
  1. METHYLPREDNISOLON [Suspect]
     Active Substance: METHYLPREDNISOLONE
     Indication: PRODUCT USED FOR UNKNOWN INDICATION
     Dosage: 32 MG/DAY FROM J49
  2. PROPRANOLOL [Suspect]
     Active Substance: PROPRANOLOL HYDROCHLORIDE
     Indication: OFF LABEL USE
     Dosage: 240 MG/DAY FROM DAY 33
  3. THIAMAZOLE [Suspect]
     Active Substance: METHIMAZOLE
     Indication: PRODUCT USED FOR UNKNOWN INDICATION
     Dosage: 60 MG/ DAY FROM J33 TILL J41
  4. VERAPAMIL [Concomitant]
     Active Substance: VERAPAMIL HYDROCHLORIDE
     Indication: PRODUCT USED FOR UNKNOWN INDICATION
     Dosage: 120 MG/DAY FROM D42 TILL D49
     Route: 065
  5. DIGOXIN. [Suspect]
     Active Substance: DIGOXIN
     Indication: ATRIAL FIBRILLATION
     Dosage: 0.25 MG/DAY ON DAYS 0, 8, 33, 42, 49 AND 94
  6. PROPRANOLOL [Suspect]
     Active Substance: PROPRANOLOL HYDROCHLORIDE
     Indication: ATRIAL FIBRILLATION
     Dosage: 120 MG/DAY FROM D0
  7. POTASSIUM PERCHLORATE [Suspect]
     Active Substance: POTASSIUM PERCHLORATE
     Indication: PRODUCT USED FOR UNKNOWN INDICATION
     Dosage: 900 MG/ DAY FOR 8 DAYS
  8. POTASSIUM PERCHLORATE [Suspect]
     Active Substance: POTASSIUM PERCHLORATE
     Dosage: 1350 MG/DAY FOR 16 DAYS
  9. METHYLPREDNISOLON [Suspect]
     Active Substance: METHYLPREDNISOLONE
     Dosage: 64 MG/ DAY FROM DAY 8
  10. METHYLPREDNISOLON [Suspect]
     Active Substance: METHYLPREDNISOLONE
     Dosage: 96 MG/DAY FROM DAY 33 TILL J41
  11. METHYLPREDNISOLON [Suspect]
     Active Substance: METHYLPREDNISOLONE
     Dosage: 48 MG/DAY FROM DAY 0
  12. THIAMAZOLE [Suspect]
     Active Substance: METHIMAZOLE
     Dosage: 40 MG/DAY FROM J8 TILL J32
  13. THIAMAZOLE [Suspect]
     Active Substance: METHIMAZOLE
     Dosage: 60 MG/ DAY FOR 7 DAYS

REACTIONS (5)
  - Drug administered to patient of inappropriate age [Unknown]
  - Cardiac failure [Recovering/Resolving]
  - Product use in unapproved indication [Unknown]
  - Off label use [Unknown]
  - Condition aggravated [Recovering/Resolving]
